FAERS Safety Report 16564716 (Version 1)
Quarter: 2019Q3

REPORT INFORMATION
  Report Type: Spontaneous
  Country: DE (occurrence: DE)
  Receive Date: 20190712
  Receipt Date: 20190712
  Transmission Date: 20191004
  Serious: Yes (Hospitalization)
  Sender: FDA-Public Use
  Company Number: DE-ACCORD-138322

PATIENT
  Age: 62 Year
  Sex: Female
  Weight: 59 kg

DRUGS (11)
  1. METAMIZOLE SODIUM [Concomitant]
     Active Substance: METAMIZOLE SODIUM
     Dosage: 1 G, 0-0-1-1
     Route: 048
  2. FLUOROURACIL. [Suspect]
     Active Substance: FLUOROURACIL
     Indication: PRODUCT USED FOR UNKNOWN INDICATION
     Dosage: 2000 MG / M2, ACCORDING TO SCHEME, MOST RECENTLY 13.11.2017
     Route: 042
  3. SPIRONOLACTONE. [Concomitant]
     Active Substance: SPIRONOLACTONE
     Dosage: 50 MG, 1-0-0-0
     Route: 048
  4. CISPLATIN. [Suspect]
     Active Substance: CISPLATIN
     Indication: PRODUCT USED FOR UNKNOWN INDICATION
     Dosage: 50 MG / M2, ACCORDING TO SCHEME, MOST RECENTLY 13.11.2017
     Route: 042
  5. CALCIUM LEVOFOLINATE [Suspect]
     Active Substance: LEVOLEUCOVORIN CALCIUM
     Indication: PRODUCT USED FOR UNKNOWN INDICATION
     Dosage: 500 MG / M2, ACCORDING TO SCHEME, MOST RECENTLY 20.11.2017
     Route: 042
  6. TOREM [Concomitant]
     Active Substance: TORSEMIDE
     Dosage: 10 MG, 1-0-0-0
     Route: 048
  7. CELECOXIB. [Concomitant]
     Active Substance: CELECOXIB
     Dosage: 100 MG, 1-0-1-0, TABLET
     Route: 048
  8. LEVOTHYROXIN-NATRIUM [Concomitant]
     Active Substance: LEVOTHYROXINE SODIUM
     Dosage: 75 MICROG, 1-0-0-0
     Route: 048
  9. TAPENTADOL [Concomitant]
     Active Substance: TAPENTADOL
     Dosage: 50 MG, 1-0-1-0, TABLET
     Route: 048
  10. NOVALGIN [Concomitant]
     Dosage: 500 MG, 1-0-0-1
     Route: 048
  11. LYRICA [Concomitant]
     Active Substance: PREGABALIN
     Dosage: 100 MG, 1-0-1-0, STRENGTH: 100 MG
     Route: 048

REACTIONS (5)
  - Depressed level of consciousness [Unknown]
  - Chills [Unknown]
  - General physical health deterioration [Unknown]
  - Systemic infection [Unknown]
  - Pyrexia [Unknown]
